FAERS Safety Report 18609047 (Version 2)
Quarter: 2020Q4

REPORT INFORMATION
  Report Type: Spontaneous
  Country: JP (occurrence: JP)
  Receive Date: 20201214
  Receipt Date: 20201222
  Transmission Date: 20210114
  Serious: Yes (Death)
  Sender: FDA-Public Use
  Company Number: JP-ROCHE-2729672

PATIENT
  Age: 7 Decade
  Sex: Male

DRUGS (1)
  1. HEMLIBRA [Suspect]
     Active Substance: EMICIZUMAB-KXWH
     Indication: HAEMOPHILIA A WITH ANTI FACTOR VIII
     Dosage: DOSAGE IS UNCERTAIN.
     Route: 058

REACTIONS (2)
  - Pneumonia aspiration [Fatal]
  - Gastric fistula [Fatal]
